FAERS Safety Report 11521463 (Version 3)
Quarter: 2015Q3

REPORT INFORMATION
  Report Type: Spontaneous
  Country: JP (occurrence: None)
  Receive Date: 20150918
  Receipt Date: 20150924
  Transmission Date: 20151125
  Serious: Yes (Death, Hospitalization, Other)
  Sender: FDA-Public Use
  Company Number: JP-MDT-ADR-2015-01806

PATIENT
  Age: 19 Year
  Sex: Female

DRUGS (1)
  1. GABALON INTRATHECAL [Suspect]
     Active Substance: BACLOFEN

REACTIONS (5)
  - Respiratory tract haemorrhage [None]
  - Incision site haemorrhage [None]
  - Wound haemorrhage [None]
  - Arterial haemorrhage [None]
  - Post procedural haemorrhage [None]
